FAERS Safety Report 24017918 (Version 1)
Quarter: 2024Q2

REPORT INFORMATION
  Report Type: Spontaneous
  Country: CN (occurrence: CN)
  Receive Date: 20240627
  Receipt Date: 20240627
  Transmission Date: 20240716
  Serious: Yes (Hospitalization, Other)
  Sender: FDA-Public Use
  Company Number: CN-STERISCIENCE B.V.-2024-ST-000884

PATIENT
  Age: 39 Year
  Sex: Male

DRUGS (10)
  1. VANCOMYCIN [Suspect]
     Active Substance: VANCOMYCIN
     Indication: Intracranial infection
     Dosage: 0.5 GRAM, Q8H
     Route: 065
  2. VANCOMYCIN [Suspect]
     Active Substance: VANCOMYCIN
     Indication: Infection
     Dosage: 1 GRAM, Q8H
     Route: 065
  3. GANCICLOVIR SODIUM [Suspect]
     Active Substance: GANCICLOVIR SODIUM
     Indication: Intracranial infection
     Dosage: UNK
     Route: 065
  4. GANCICLOVIR SODIUM [Suspect]
     Active Substance: GANCICLOVIR SODIUM
     Indication: Infection
  5. MEROPENEM [Suspect]
     Active Substance: MEROPENEM
     Indication: Intracranial infection
     Dosage: UNK
     Route: 065
  6. MEROPENEM [Suspect]
     Active Substance: MEROPENEM
     Indication: Infection
  7. RIFAMPIN [Suspect]
     Active Substance: RIFAMPIN
     Indication: Intracranial infection
     Dosage: UNK
     Route: 065
  8. RIFAMPIN [Suspect]
     Active Substance: RIFAMPIN
     Indication: Infection
  9. ISONIAZID [Suspect]
     Active Substance: ISONIAZID
     Indication: Intracranial infection
     Dosage: UNK
     Route: 065
  10. ISONIAZID [Suspect]
     Active Substance: ISONIAZID
     Indication: Infection

REACTIONS (2)
  - Hepatotoxicity [None]
  - Off label use [Unknown]
